FAERS Safety Report 25989987 (Version 1)
Quarter: 2025Q4

REPORT INFORMATION
  Report Type: Spontaneous
  Country: US (occurrence: None)
  Receive Date: 20251102
  Receipt Date: 20251102
  Transmission Date: 20260117
  Serious: Yes (Disabling)
  Sender: FDA-CTU
  Company Number: None

PATIENT
  Age: 24 Year
  Sex: Female
  Weight: 60.75 kg

DRUGS (6)
  1. VAPOR INHALER [Suspect]
     Active Substance: LEVMETAMFETAMINE
     Indication: Nasal congestion
     Dosage: FREQUENCY : AS NEEDED;?
     Route: 055
     Dates: start: 20251102, end: 20251102
  2. BUSPIRONE [Concomitant]
     Active Substance: BUSPIRONE HYDROCHLORIDE
  3. SERTRALINE [Concomitant]
     Active Substance: SERTRALINE HYDROCHLORIDE
  4. VITAMIN D [Concomitant]
     Active Substance: VITAMIN D NOS
  5. VITAMINS [Concomitant]
     Active Substance: VITAMINS
  6. VAPOR INHALER [Suspect]
     Active Substance: LEVMETAMFETAMINE
     Indication: Nasal congestion
     Dosage: AS NEEDED RESPIRATORY (INHALATION)
     Route: 055
     Dates: start: 20251102, end: 20251102

REACTIONS (1)
  - Tachycardia [None]

NARRATIVE: CASE EVENT DATE: 20251102
